FAERS Safety Report 25358771 (Version 4)
Quarter: 2025Q4

REPORT INFORMATION
  Report Type: Spontaneous
  Country: US (occurrence: US)
  Receive Date: 20250526
  Receipt Date: 20251113
  Transmission Date: 20260118
  Serious: Yes (Hospitalization, Other)
  Sender: SANOFI AVENTIS
  Company Number: US-SA-2025SA139242

PATIENT
  Age: 66 Year
  Sex: Female
  Weight: 71.36 kg

DRUGS (14)
  1. DUPIXENT [Suspect]
     Active Substance: DUPILUMAB
     Indication: Illness
     Dosage: 300 MG, QOW
     Route: 058
     Dates: end: 20250429
  2. DUPIXENT [Suspect]
     Active Substance: DUPILUMAB
     Indication: Dermatitis atopic
  3. OXYCODONE [Suspect]
     Active Substance: OXYCODONE
     Dosage: UNK
  4. HYDROCHLOROTHIAZIDE [Suspect]
     Active Substance: HYDROCHLOROTHIAZIDE
     Dosage: UNK
  5. CARVEDILOL [Concomitant]
     Active Substance: CARVEDILOL
     Dosage: UNK
  6. LOSARTAN POTASSIUM [Concomitant]
     Active Substance: LOSARTAN POTASSIUM
     Dosage: UNK
  7. IBANDRONATE SODIUM [Concomitant]
     Active Substance: IBANDRONATE SODIUM
     Dosage: UNK
  8. FERROUS SULFATE [Concomitant]
     Active Substance: FERROUS SULFATE
     Dosage: UNK
  9. CYANOCOBALAMIN [Concomitant]
     Active Substance: CYANOCOBALAMIN
     Dosage: UNK
  10. ZYRTEC [Concomitant]
     Active Substance: CETIRIZINE HYDROCHLORIDE
     Dosage: UNK
  11. ASPIRIN [Concomitant]
     Active Substance: ASPIRIN
     Dosage: UNK
  12. METFORMIN [Concomitant]
     Active Substance: METFORMIN HYDROCHLORIDE
     Dosage: UNK
  13. SIMVASTATIN [Concomitant]
     Active Substance: SIMVASTATIN
     Dosage: UNK
  14. VITAMIN D3 [Concomitant]
     Active Substance: CHOLECALCIFEROL
     Dosage: UNK

REACTIONS (17)
  - Colorectal cancer [Unknown]
  - Weight decreased [Unknown]
  - Feeding disorder [Unknown]
  - Metastases to liver [Unknown]
  - Loss of consciousness [Unknown]
  - Thrombosis [Unknown]
  - Nephrolithiasis [Unknown]
  - Cataract [Unknown]
  - Influenza [Unknown]
  - Blood pressure decreased [Unknown]
  - Vomiting [Unknown]
  - Asthenia [Unknown]
  - Pruritus [Unknown]
  - Blepharitis [Unknown]
  - Eczema [Unknown]
  - Dry skin [Unknown]
  - Dry eye [Unknown]

NARRATIVE: CASE EVENT DATE: 20241029
